FAERS Safety Report 17268651 (Version 1)
Quarter: 2020Q1

REPORT INFORMATION
  Report Type: Report from Study
  Country: US (occurrence: US)
  Receive Date: 20200114
  Receipt Date: 20200114
  Transmission Date: 20200409
  Serious: No
  Sender: FDA-Public Use
  Company Number: US-BEH-2019111291

PATIENT
  Age: 57 Year
  Sex: Male
  Weight: 103.4 kg

DRUGS (2)
  1. HAEGARDA [Suspect]
     Active Substance: HUMAN C1-ESTERASE INHIBITOR
     Indication: HEREDITARY ANGIOEDEMA
     Dosage: 6300 INTERNATIONAL UNIT, BIW(EVERY 3-4 DAYS)
     Route: 065
     Dates: start: 20191217
  2. HAEGARDA [Suspect]
     Active Substance: HUMAN C1-ESTERASE INHIBITOR
     Indication: PROPHYLAXIS

REACTIONS (1)
  - Nasopharyngitis [Not Recovered/Not Resolved]
